FAERS Safety Report 4639663-4 (Version None)
Quarter: 2005Q2

REPORT INFORMATION
  Report Type: 
  Country: None (occurrence: None)
  Receive Date: 20050328
  Receipt Date: 20041215
  Transmission Date: 20051028
  Serious: No
  Sender: FDA-Public Use
  Company Number: USA041286289

PATIENT

DRUGS (1)
  1. STRATTERA [Suspect]

REACTIONS (1)
  - DRUG WITHDRAWAL SYNDROME [None]
